FAERS Safety Report 8356035-X (Version None)
Quarter: 2012Q2

REPORT INFORMATION
  Report Type: 
  Country: None (occurrence: None)
  Receive Date: 20120511
  Receipt Date: 20120511
  Transmission Date: 20120825
  Serious: Yes (Death, Hospitalization, Other)
  Sender: FDA-Public Use
  Company Number: None

PATIENT
  Sex: Male
  Weight: 77.1115 kg

DRUGS (5)
  1. INCIVEK [Suspect]
     Indication: HEPATITIS C
     Dosage: 2 TABLETS 3 TIMES A DAY PO
     Route: 048
     Dates: start: 20120128, end: 20120214
  2. PEGASYS [Suspect]
     Indication: HEPATITIS C
     Dosage: 1 SINGLE-USE PREFILLED SYRINGE ONCE WEEKLY SQ
     Route: 058
     Dates: start: 20120128, end: 20120214
  3. METRONIDAZOLE [Concomitant]
  4. RIBAVIRIN [Concomitant]
  5. AMOXICILLIN AND CLAVULANATE POTASSIUM [Concomitant]

REACTIONS (4)
  - HEPATIC FAILURE [None]
  - RENAL FAILURE [None]
  - LIVER DISORDER [None]
  - ABDOMINAL PAIN [None]
